FAERS Safety Report 7876208-X (Version None)
Quarter: 2011Q4

REPORT INFORMATION
  Report Type: 
  Country: None (occurrence: None)
  Receive Date: 20111031
  Receipt Date: 20111019
  Transmission Date: 20120403
  Serious: Yes (Other)
  Sender: FDA-Public Use
  Company Number: FR-BRISTOL-MYERS SQUIBB COMPANY-16184921

PATIENT
  Age: 63 Year
  Sex: Female

DRUGS (2)
  1. ONGLYZA [Suspect]
     Route: 048
  2. CRESTOR [Suspect]

REACTIONS (3)
  - ASTHENIA [None]
  - TRANSAMINASES INCREASED [None]
  - GAMMA-GLUTAMYLTRANSFERASE INCREASED [None]
